FAERS Safety Report 25638034 (Version 1)
Quarter: 2025Q3

REPORT INFORMATION
  Report Type: Report from Study
  Country: CA (occurrence: CA)
  Receive Date: 20250804
  Receipt Date: 20250804
  Transmission Date: 20251021
  Serious: Yes (Other)
  Sender: TAKEDA
  Company Number: CA-TAKEDA-2025TUS068640

PATIENT
  Sex: Male

DRUGS (3)
  1. VEDOLIZUMAB [Suspect]
     Active Substance: VEDOLIZUMAB
     Indication: Colitis microscopic
  2. AZATHIOPRINE [Concomitant]
     Active Substance: AZATHIOPRINE
  3. Cortiment [Concomitant]

REACTIONS (3)
  - Blood glucose decreased [Recovered/Resolved]
  - Dizziness [Unknown]
  - Off label use [Unknown]
